FAERS Safety Report 6252132-3 (Version None)
Quarter: 2009Q2

REPORT INFORMATION
  Report Type: 
  Country: None (occurrence: None)
  Receive Date: 20090630
  Receipt Date: 20070522
  Transmission Date: 20091009
  Serious: Yes (Death, Hospitalization)
  Sender: FDA-Public Use
  Company Number: US-ROCHE-639082

PATIENT
  Sex: Male

DRUGS (10)
  1. ENFUVIRTIDE [Suspect]
     Route: 065
     Dates: start: 20060322, end: 20071024
  2. EMTRIVA [Concomitant]
     Dates: start: 20031003, end: 20060706
  3. REYATAZ [Concomitant]
     Dates: start: 20031003, end: 20060708
  4. ZIAGEN [Concomitant]
     Dates: start: 20031003, end: 20060608
  5. NORVIR [Concomitant]
     Dosage: FREUQUENCY REPORTED AS QD
     Dates: start: 20050322, end: 20060706
  6. ATRIPLA [Concomitant]
     Dosage: FREQUENCY REPORTED AS QD
     Dates: start: 20060706, end: 20080317
  7. ISENTRESS [Concomitant]
     Dates: start: 20071024, end: 20080317
  8. LEVAQUIN [Concomitant]
     Dosage: FREQUENCY REPORTED AS QD
     Dates: start: 20060322, end: 20060101
  9. MEPRON [Concomitant]
     Dates: start: 20060322, end: 20060101
  10. CIPRO [Concomitant]
     Dates: start: 20060907, end: 20061001

REACTIONS (2)
  - ANAEMIA [None]
  - DEATH [None]
